FAERS Safety Report 5490007-8 (Version None)
Quarter: 2007Q4

REPORT INFORMATION
  Report Type: 
  Country: None (occurrence: None)
  Receive Date: 20071018
  Receipt Date: 20071008
  Transmission Date: 20080405
  Serious: Yes (Hospitalization, Congenital Anomaly)
  Sender: FDA-Public Use
  Company Number: FR-ABBOTT-07P-056-0419893-00

PATIENT
  Sex: Female
  Weight: 2.7 kg

DRUGS (1)
  1. DEPAKENE [Suspect]
     Indication: DRUG EXPOSURE DURING PREGNANCY
     Route: 064

REACTIONS (10)
  - CORYNEBACTERIUM INFECTION [None]
  - DYSPNOEA [None]
  - EYE MOVEMENT DISORDER [None]
  - FEEDING DISORDER NEONATAL [None]
  - MALAISE [None]
  - MICROCEPHALY [None]
  - MYOCLONUS [None]
  - NASAL CONGESTION [None]
  - ORAL INTAKE REDUCED [None]
  - PYREXIA [None]
